FAERS Safety Report 23330561 (Version 1)
Quarter: 2023Q4

REPORT INFORMATION
  Report Type: Spontaneous
  Country: US (occurrence: US)
  Receive Date: 20231222
  Receipt Date: 20231222
  Transmission Date: 20240110
  Serious: Yes (Other)
  Sender: FDA-Public Use
  Company Number: US-CHEPLA-2023016158

PATIENT
  Sex: Female

DRUGS (12)
  1. CAPECITABINE [Suspect]
     Active Substance: CAPECITABINE
     Indication: Breast cancer female
  2. ADVAIR HFA [Suspect]
     Active Substance: FLUTICASONE PROPIONATE\SALMETEROL XINAFOATE
  3. ALBUTEROL [Suspect]
     Active Substance: ALBUTEROL
  4. BACTRIM [Suspect]
     Active Substance: SULFAMETHOXAZOLE\TRIMETHOPRIM
  5. CITALOPRAM [Suspect]
     Active Substance: CITALOPRAM HYDROBROMIDE
  6. HERCEPTIN [Suspect]
     Active Substance: TRASTUZUMAB
  7. MEGESTROL [Suspect]
     Active Substance: MEGESTROL
  8. VITAMINS [Suspect]
     Active Substance: VITAMINS
  9. ONDANSETRON [Suspect]
     Active Substance: ONDANSETRON
  10. PANTOPRAZOLE [Suspect]
     Active Substance: PANTOPRAZOLE
  11. PROCHLORPERAZINE [Suspect]
     Active Substance: PROCHLORPERAZINE
  12. PROMETHAZINE [Suspect]
     Active Substance: PROMETHAZINE HYDROCHLORIDE

REACTIONS (1)
  - Pneumonitis [Unknown]

NARRATIVE: CASE EVENT DATE: 20231214
